FAERS Safety Report 6984488-8 (Version None)
Quarter: 2010Q3

REPORT INFORMATION
  Report Type: 
  Country: None (occurrence: None)
  Receive Date: 20100915
  Receipt Date: 20100901
  Transmission Date: 20110219
  Serious: Yes (Other)
  Sender: FDA-Public Use
  Company Number: GR-RANBAXY-2010RR-38071

PATIENT
  Age: 52 Year
  Sex: Female

DRUGS (2)
  1. RISPERIDONE [Suspect]
     Dosage: 12 MG, UNK
  2. ZIPRASIDONE HCL [Suspect]
     Dosage: 40 MG, UNK

REACTIONS (1)
  - NEUROLEPTIC MALIGNANT SYNDROME [None]
